FAERS Safety Report 7376471-8 (Version None)
Quarter: 2011Q1

REPORT INFORMATION
  Report Type: 
  Country: None (occurrence: None)
  Receive Date: 20110325
  Receipt Date: 20110322
  Transmission Date: 20110831
  Serious: Yes (Other)
  Sender: FDA-Public Use
  Company Number: BR-PFIZER INC-2011063913

PATIENT
  Age: 73 Year
  Sex: Male

DRUGS (1)
  1. VIAGRA [Suspect]
     Indication: PROSTATIC OPERATION
     Dosage: UNK, 1X/DAY
     Route: 048

REACTIONS (1)
  - HEART VALVE OPERATION [None]
